FAERS Safety Report 10488865 (Version 2)
Quarter: 2014Q4

REPORT INFORMATION
  Report Type: Spontaneous
  Country: US (occurrence: US)
  Receive Date: 20141002
  Receipt Date: 20141022
  Transmission Date: 20150528
  Serious: Yes (Other)
  Sender: FDA-Public Use
  Company Number: US-JNJFOC-20140915533

PATIENT
  Sex: Male

DRUGS (2)
  1. STELARA [Suspect]
     Active Substance: USTEKINUMAB
     Indication: PSORIASIS
     Route: 058
     Dates: start: 20120612
  2. CLOBETASOL [Concomitant]
     Active Substance: CLOBETASOL
     Dates: start: 20120612

REACTIONS (1)
  - Chikungunya virus infection [Not Recovered/Not Resolved]
